FAERS Safety Report 4920981-7 (Version None)
Quarter: 2006Q1

REPORT INFORMATION
  Report Type: 
  Country: None (occurrence: None)
  Receive Date: 20060223
  Receipt Date: 20060214
  Transmission Date: 20060701
  Serious: Yes (Hospitalization)
  Sender: FDA-Public Use
  Company Number: US-MERCK-0602USA04271

PATIENT
  Age: 73 Year
  Sex: Female

DRUGS (3)
  1. COZAAR [Suspect]
     Indication: HYPERTENSION
     Route: 048
     Dates: start: 20060118, end: 20060129
  2. HYDRODIURIL [Concomitant]
     Route: 048
  3. ATENOLOL [Concomitant]
     Route: 065

REACTIONS (5)
  - ASTHENIA [None]
  - DIZZINESS [None]
  - FEELING ABNORMAL [None]
  - PULSE ABSENT [None]
  - URTICARIA [None]
